FAERS Safety Report 8971310 (Version 1)
Quarter: 2012Q4

REPORT INFORMATION
  Report Type: 
  Country: US (occurrence: US)
  Receive Date: 20121218
  Receipt Date: 20121218
  Transmission Date: 20130627
  Serious: Yes (Hospitalization, Other)
  Sender: FDA-Public Use
  Company Number: US-AMGEN-USASP2011061948

PATIENT
  Sex: Female

DRUGS (4)
  1. ENBREL [Suspect]
     Indication: RHEUMATOID ARTHRITIS
     Dosage: 50 mg, qwk
     Dates: start: 20021201
  2. ENBREL [Suspect]
     Indication: JUVENILE ARTHRITIS
  3. ARAVA [Concomitant]
     Dosage: UNK
  4. ORENCIA [Concomitant]
     Dosage: UNK

REACTIONS (8)
  - Gastric haemorrhage [Recovered/Resolved]
  - Rectal haemorrhage [Recovered/Resolved]
  - Large intestine polyp [Recovered/Resolved]
  - Dyspnoea [Recovered/Resolved]
  - Pneumonia [Recovered/Resolved]
  - Fatigue [Not Recovered/Not Resolved]
  - Drug ineffective [Recovered/Resolved]
  - Pruritus [Recovered/Resolved]
